FAERS Safety Report 9393923 (Version 1)
Quarter: 2020Q3

REPORT INFORMATION
  Report Type: Spontaneous
  Country: FR (occurrence: FR)
  Receive Date: 20130710
  Receipt Date: 20130710
  Transmission Date: 20201105
  Serious: Yes (Death, Life-Threatening)
  Sender: FDA-Public Use
  Company Number: FR-BAXTER-2013BAX025570

PATIENT
  Age: 71 Year
  Sex: Male

DRUGS (10)
  1. SEVOFLURANE BAXTER 1 ML/ML, LIQUIDE POUR INHALATION PAR VAPEUR [Suspect]
     Active Substance: SEVOFLURANE
     Indication: ANAESTHESIA
     Route: 055
     Dates: start: 20080725, end: 20080725
  2. PENTOTHAL [Suspect]
     Active Substance: THIOPENTAL SODIUM
     Indication: ANAESTHESIA
     Route: 042
     Dates: start: 20080725, end: 20080725
  3. TRACRIUM [Suspect]
     Active Substance: ATRACURIUM BESYLATE
     Indication: ANAESTHESIA
     Route: 042
     Dates: start: 20080725, end: 20080725
  4. PERFALGAN [Suspect]
     Active Substance: ACETAMINOPHEN
     Route: 042
     Dates: start: 20080725, end: 20080725
  5. TRACRIUM [Suspect]
     Active Substance: ATRACURIUM BESYLATE
     Route: 042
     Dates: start: 20080725, end: 20080725
  6. EPHEDRINE. [Suspect]
     Active Substance: EPHEDRINE
     Indication: PROPHYLAXIS
     Route: 042
     Dates: start: 20080725, end: 20080725
  7. SUFENTANIL [Suspect]
     Active Substance: SUFENTANIL
     Indication: ANAESTHESIA
     Route: 042
     Dates: start: 20080725, end: 20080725
  8. ACUPAN [Suspect]
     Active Substance: NEFOPAM HYDROCHLORIDE
     Route: 042
     Dates: start: 20080725, end: 20080725
  9. PERFALGAN [Suspect]
     Active Substance: ACETAMINOPHEN
     Indication: ANAESTHESIA
     Route: 042
     Dates: start: 20080725, end: 20080725
  10. ACUPAN [Suspect]
     Active Substance: NEFOPAM HYDROCHLORIDE
     Indication: ANAESTHESIA
     Route: 042
     Dates: start: 20080725, end: 20080725

REACTIONS (4)
  - General physical health deterioration [Fatal]
  - Anaphylactic reaction [Recovered/Resolved]
  - Shock [Recovered/Resolved]
  - Pancreatic carcinoma metastatic [Fatal]

NARRATIVE: CASE EVENT DATE: 20080725
